FAERS Safety Report 23831899 (Version 1)
Quarter: 2024Q2

REPORT INFORMATION
  Report Type: Spontaneous
  Country: US (occurrence: None)
  Receive Date: 20240507
  Receipt Date: 20240507
  Transmission Date: 20240716
  Serious: Yes (Life-Threatening, Hospitalization)
  Sender: FDA-Public Use
  Company Number: None

PATIENT
  Age: 49 Year
  Sex: Female
  Weight: 196 kg

DRUGS (1)
  1. IRON SUCROSE [Suspect]
     Active Substance: IRON SUCROSE
     Indication: Iron deficiency anaemia
     Dosage: FREQUENCY : ONCE;?
     Dates: start: 20221017, end: 20221017

REACTIONS (3)
  - Anaphylactic reaction [None]
  - Nausea [None]
  - Cardio-respiratory arrest [None]

NARRATIVE: CASE EVENT DATE: 20221017
